FAERS Safety Report 4424112-1 (Version None)
Quarter: 2004Q3

REPORT INFORMATION
  Report Type: 
  Country: None (occurrence: None)
  Receive Date: 20040812
  Receipt Date: 20040809
  Transmission Date: 20050211
  Serious: Yes (Hospitalization)
  Sender: FDA-Public Use
  Company Number: CHNY2004ES01475

PATIENT
  Age: 42 Year
  Sex: Male

DRUGS (2)
  1. TONOPAN (NCH) [Suspect]
     Indication: HEADACHE
     Route: 048
     Dates: start: 20040611
  2. TETANUS ANTITOXIN [Concomitant]
     Dosage: .5 ML, ONCE/SINGLE
     Route: 030
     Dates: start: 20040602, end: 20040602

REACTIONS (2)
  - NEPHRITIS INTERSTITIAL [None]
  - RENAL FAILURE ACUTE [None]
